FAERS Safety Report 5074302-2 (Version None)
Quarter: 2006Q3

REPORT INFORMATION
  Report Type: 
  Country: None (occurrence: None)
  Receive Date: 20060808
  Receipt Date: 20050708
  Transmission Date: 20061208
  Serious: No
  Sender: FDA-Public Use
  Company Number: US-AMGEN-KDL141910

PATIENT
  Age: 69 Year
  Sex: Female
  Weight: 47.2 kg

DRUGS (1)
  1. PROCRIT [Suspect]
     Indication: ANAEMIA
     Route: 058
     Dates: start: 20020101

REACTIONS (2)
  - ALOPECIA [None]
  - BLOOD IRON INCREASED [None]
